FAERS Safety Report 9542985 (Version 1)
Quarter: 2013Q2

REPORT INFORMATION
  Report Type: Spontaneous
  Country: US (occurrence: None)
  Receive Date: 20130524
  Receipt Date: 20130524
  Transmission Date: 20140414
  Serious: Yes (Hospitalization, Other)
  Sender: FDA-Public Use
  Company Number: PHEH2013US003957

PATIENT
  Age: 33 Year
  Sex: Male
  Weight: 95.9 kg

DRUGS (2)
  1. GILENYA (FINGOLIMOD) CAPSULES 0.5MG [Suspect]
     Indication: MULTIPLE SCLEROSIS
     Dosage: 0.5 MG, QD, ORAL
     Route: 048
     Dates: start: 20130211, end: 20130213
  2. ARIMIDWX (ANASTROZOLE) TABLET [Concomitant]

REACTIONS (2)
  - Heart rate decreased [None]
  - Blood pressure decreased [None]
